FAERS Safety Report 17338040 (Version 1)
Quarter: 2020Q1

REPORT INFORMATION
  Report Type: Spontaneous
  Country: GB (occurrence: GB)
  Receive Date: 20200129
  Receipt Date: 20200129
  Transmission Date: 20200409
  Serious: Yes (Other)
  Sender: FDA-Public Use
  Company Number: GB-TEVA-2020-GB-1175415

PATIENT
  Age: 89 Year
  Sex: Female
  Weight: 61.68 kg

DRUGS (2)
  1. CLARITHROMYCIN. [Suspect]
     Active Substance: CLARITHROMYCIN
     Indication: LOWER RESPIRATORY TRACT INFECTION
     Dosage: 1000 MG
     Route: 048
     Dates: start: 20191228, end: 20191230
  2. LANSOPRAZOLE. [Concomitant]
     Active Substance: LANSOPRAZOLE

REACTIONS (5)
  - Fear [Unknown]
  - Depression [Unknown]
  - Hallucinations, mixed [Not Recovered/Not Resolved]
  - Anxiety [Unknown]
  - Panic reaction [Unknown]

NARRATIVE: CASE EVENT DATE: 20191229
